FAERS Safety Report 20822382 (Version 1)
Quarter: 2022Q2

REPORT INFORMATION
  Report Type: Spontaneous
  Country: ES (occurrence: ES)
  Receive Date: 20220512
  Receipt Date: 20220512
  Transmission Date: 20220720
  Serious: Yes (Other)
  Sender: FDA-Public Use
  Company Number: None

PATIENT
  Age: 73 Year
  Sex: Male
  Weight: 86.5 kg

DRUGS (6)
  1. CEFTRIAXONE [Suspect]
     Active Substance: CEFTRIAXONE
     Indication: Sepsis
     Dosage: 2 G, Q24H (2G CADA 24H)
     Route: 042
     Dates: start: 20210317, end: 20210323
  2. AMOXICILLIN\CLAVULANIC ACID [Suspect]
     Active Substance: AMOXICILLIN\CLAVULANIC ACID
     Indication: Febrile neutropenia
     Dosage: 1 DOSAGE FORM, Q8H (1 COMP CADA 8H) (COMPRIMIDO)
     Route: 048
     Dates: start: 20210322, end: 20210323
  3. PIPERACILLIN SODIUM\TAZOBACTAM SODIUM [Suspect]
     Active Substance: PIPERACILLIN SODIUM\TAZOBACTAM SODIUM
     Indication: Sepsis
     Dosage: 4 G, Q6H (4G CADA 6H)
     Route: 042
     Dates: start: 20210317, end: 20210323
  4. DEXKETOPROFEN [Suspect]
     Active Substance: DEXKETOPROFEN
     Indication: Product used for unknown indication
     Dosage: 25 MG, ONCE/SINGLE (1 COMPRIMIDO AISLADO)
     Route: 048
     Dates: start: 20210317, end: 20210317
  5. CIPROFLOXACIN HYDROCHLORIDE [Suspect]
     Active Substance: CIPROFLOXACIN HYDROCHLORIDE
     Indication: Febrile neutropenia
     Dosage: 500 MG, Q24H (1 COMP CADA 12H)
     Route: 048
     Dates: start: 20210322, end: 20210323
  6. PANTOPRAZOLE SODIUM [Suspect]
     Active Substance: PANTOPRAZOLE SODIUM
     Indication: Product used for unknown indication
     Dosage: 40 MG, Q24H (1-0-0)
     Route: 048
     Dates: start: 20210317, end: 20210323

REACTIONS (1)
  - Hepatitis [Recovering/Resolving]

NARRATIVE: CASE EVENT DATE: 20210323
